FAERS Safety Report 19126814 (Version 1)
Quarter: 2021Q2

REPORT INFORMATION
  Report Type: Spontaneous
  Country: US (occurrence: US)
  Receive Date: 20210412
  Receipt Date: 20210412
  Transmission Date: 20210717
  Serious: Yes (Hospitalization)
  Sender: FDA-Public Use
  Company Number: 2020SGN02117

PATIENT
  Age: 52 Year
  Sex: Female

DRUGS (5)
  1. CAPECITABINE. [Concomitant]
     Active Substance: CAPECITABINE
     Indication: BREAST CANCER FEMALE
     Dosage: 1000 MG/ML, BID DAY #1?14 DAYS Q21 DAYS
     Route: 048
  2. TUKYSA [Suspect]
     Active Substance: TUCATINIB
     Indication: BREAST CANCER STAGE IV
     Dosage: 300 MG, BID
     Route: 048
     Dates: start: 20200430
  3. ZOMETA [Concomitant]
     Active Substance: ZOLEDRONIC ACID
     Dosage: 4 MG, Q4WEEKS
  4. TUKYSA [Suspect]
     Active Substance: TUCATINIB
     Dosage: 2 DF, QD
  5. TRASTUZUMAB. [Concomitant]
     Active Substance: TRASTUZUMAB
     Dosage: 6 MG/KG

REACTIONS (12)
  - Pneumonia [Unknown]
  - Haematemesis [Unknown]
  - Pain in extremity [Unknown]
  - Dry skin [Unknown]
  - Nausea [Unknown]
  - Cough [Unknown]
  - Dysphagia [Unknown]
  - Tenderness [Unknown]
  - Abdominal pain upper [Unknown]
  - Dyspnoea [Unknown]
  - Speech disorder [Unknown]
  - Skin exfoliation [Unknown]

NARRATIVE: CASE EVENT DATE: 20200713
